FAERS Safety Report 5601320-5 (Version None)
Quarter: 2008Q1

REPORT INFORMATION
  Report Type: 
  Country: None (occurrence: None)
  Receive Date: 20080124
  Receipt Date: 20080123
  Transmission Date: 20080703
  Serious: Yes (Life-Threatening, Other)
  Sender: FDA-Public Use
  Company Number: B0504869A

PATIENT
  Age: 53 Year
  Sex: Male

DRUGS (5)
  1. AUGMENTIN '125' [Suspect]
     Indication: TOOTH ABSCESS
     Route: 048
     Dates: start: 20070815, end: 20070815
  2. METRONIDAZOLE [Concomitant]
     Indication: TOOTH ABSCESS
     Dosage: 1200MG PER DAY
     Route: 048
     Dates: start: 20070813
  3. CO-CODAMOL [Concomitant]
     Indication: TOOTH ABSCESS
     Route: 048
     Dates: start: 20070814
  4. PHENYTOIN [Concomitant]
     Indication: EPILEPSY
     Dosage: 125MG PER DAY
     Route: 048
  5. LANSOPRAZOLE [Concomitant]
     Dosage: 30MG PER DAY
     Route: 048

REACTIONS (4)
  - ERYTHEMA [None]
  - FEAR [None]
  - PRURITUS [None]
  - SOMNOLENCE [None]
